FAERS Safety Report 12809976 (Version 1)
Quarter: 2016Q4

REPORT INFORMATION
  Report Type: Report from Study
  Country: KR (occurrence: KR)
  Receive Date: 20161005
  Receipt Date: 20161005
  Transmission Date: 20170207
  Serious: Yes (Life-Threatening)
  Sender: FDA-Public Use
  Company Number: KR-B.I. PHARMACEUTICALS,INC./RIDGEFIELD-2016-BI-52364RK

PATIENT
  Age: 74 Year
  Sex: Female
  Weight: 55 kg

DRUGS (11)
  1. DEPAKOTE [Concomitant]
     Active Substance: DIVALPROEX SODIUM
     Indication: PROPHYLAXIS
     Route: 065
     Dates: start: 20160722
  2. INDENOL [Concomitant]
     Active Substance: PROPRANOLOL HYDROCHLORIDE
     Indication: CARDIOVASCULAR EVENT PROPHYLAXIS
  3. INDENOL [Concomitant]
     Active Substance: PROPRANOLOL HYDROCHLORIDE
     Indication: CARDIOVASCULAR EVENT PROPHYLAXIS
     Dosage: STRENGTH: 40MG
     Route: 065
     Dates: start: 20160229, end: 20160330
  4. AMANTA [Concomitant]
     Indication: PROPHYLAXIS
     Route: 065
     Dates: start: 20160125
  5. MADOPAR HBS [Concomitant]
     Active Substance: BENSERAZIDE HYDROCHLORIDE\LEVODOPA
     Indication: PROPHYLAXIS
     Dosage: 1 CAP
     Route: 065
     Dates: start: 20160229
  6. MUCOSTA [Concomitant]
     Active Substance: REBAMIPIDE
     Indication: PROPHYLAXIS
     Route: 065
     Dates: start: 20160427
  7. MUCOSTA [Concomitant]
     Active Substance: REBAMIPIDE
     Dosage: STRENGTH: 100MG
     Route: 065
     Dates: start: 20160229, end: 20160330
  8. INDENOL [Concomitant]
     Active Substance: PROPRANOLOL HYDROCHLORIDE
     Indication: PROPHYLAXIS
     Route: 065
     Dates: start: 20160427
  9. NICETILE [Concomitant]
     Active Substance: ACETYLCARNITINE HYDROCHLORIDE
     Route: 065
     Dates: start: 20160229, end: 20160329
  10. GILOTRIF [Suspect]
     Active Substance: AFATINIB
     Indication: NON-SMALL CELL LUNG CANCER
     Route: 048
     Dates: start: 20151217, end: 20160927
  11. NICETILE [Concomitant]
     Active Substance: ACETYLCARNITINE HYDROCHLORIDE
     Indication: BRAIN NEOPLASM
     Route: 065
     Dates: start: 20160330

REACTIONS (1)
  - Seizure [Not Recovered/Not Resolved]

NARRATIVE: CASE EVENT DATE: 20160729
